FAERS Safety Report 5889299-2 (Version None)
Quarter: 2008Q3

REPORT INFORMATION
  Report Type: 
  Country: None (occurrence: None)
  Receive Date: 20080919
  Receipt Date: 20080912
  Transmission Date: 20090109
  Serious: Yes (Hospitalization, Other)
  Sender: FDA-Public Use
  Company Number: US-WATSON-2008-05493

PATIENT
  Age: 23 Year
  Sex: Male

DRUGS (3)
  1. NORCO 10/325 (WATSON LABORATORIES) [Suspect]
     Indication: PAIN
     Dosage: 2 TABLETS, Q4H
     Route: 048
     Dates: end: 20080721
  2. HYDROCODONE BITARTRATE AND ACETAMINOPHEN [Suspect]
     Indication: PAIN
     Dosage: 2 TABLETS, Q4H
     Route: 048
     Dates: start: 20080908, end: 20080911
  3. FENTANYL CITRATE [Concomitant]
     Indication: PAIN
     Dosage: PCA
     Route: 042

REACTIONS (6)
  - BLINDNESS [None]
  - BRONCHOPULMONARY ASPERGILLOSIS [None]
  - CONFUSIONAL STATE [None]
  - OVERDOSE [None]
  - RENAL FAILURE [None]
  - SOMNOLENCE [None]
